FAERS Safety Report 6310849-6 (Version None)
Quarter: 2009Q3

REPORT INFORMATION
  Report Type: 
  Country: None (occurrence: None)
  Receive Date: 20090812
  Receipt Date: 20090723
  Transmission Date: 20100115
  Serious: Yes (Hospitalization, Other)
  Sender: FDA-Public Use
  Company Number: JPI-P-007882

PATIENT
  Age: 56 Year
  Sex: Female
  Weight: 52.1637 kg

DRUGS (7)
  1. XYREM [Suspect]
     Indication: NARCOLEPSY
     Dosage: 4.5 GM (2.25 GM, 2 IN 1 D), ORAL; 9 GM (4.5 GM, 2 IN 1 D), ORAL; (VARIOUS DOSE CHANGES), ORAL
     Route: 048
     Dates: start: 20041015
  2. XYREM [Suspect]
     Indication: NARCOLEPSY
     Dosage: 4.5 GM (2.25 GM, 2 IN 1 D), ORAL; 9 GM (4.5 GM, 2 IN 1 D), ORAL; (VARIOUS DOSE CHANGES), ORAL
     Route: 048
     Dates: start: 20080901
  3. XYREM [Suspect]
     Indication: NARCOLEPSY
     Dosage: 4.5 GM (2.25 GM, 2 IN 1 D), ORAL; 9 GM (4.5 GM, 2 IN 1 D), ORAL; (VARIOUS DOSE CHANGES), ORAL
     Route: 048
     Dates: start: 20090601
  4. XYREM [Suspect]
     Indication: NARCOLEPSY
     Dosage: 4.5 GM (2.25 GM, 2 IN 1 D), ORAL; 9 GM (4.5 GM, 2 IN 1 D), ORAL; (VARIOUS DOSE CHANGES), ORAL
     Route: 048
     Dates: start: 20090601
  5. ACETYLSALICYLIC ACID (PILL) [Concomitant]
  6. SUMATRIPTAN SUCCINATE [Concomitant]
  7. METHYLPHENIDATE (PILL) [Concomitant]

REACTIONS (8)
  - BENIGN RENAL NEOPLASM [None]
  - GALLBLADDER DISORDER [None]
  - INSOMNIA [None]
  - MALAISE [None]
  - NAUSEA [None]
  - PAIN IN EXTREMITY [None]
  - PRODUCT QUALITY ISSUE [None]
  - SENSATION OF HEAVINESS [None]
